FAERS Safety Report 8187436-0 (Version None)
Quarter: 2012Q1

REPORT INFORMATION
  Report Type: 
  Country: None (occurrence: None)
  Receive Date: 20120302
  Receipt Date: 20120221
  Transmission Date: 20120608
  Serious: Yes (Life-Threatening, Hospitalization)
  Sender: FDA-Public Use
  Company Number: TPG2012A00326

PATIENT
  Age: 56 Year
  Sex: Female

DRUGS (1)
  1. ACTOS [Suspect]
     Indication: DIABETES MELLITUS
     Dosage: 30 (30 1-0-0)
     Route: 048
     Dates: start: 20090701, end: 20110701

REACTIONS (1)
  - BLADDER CANCER [None]
